FAERS Safety Report 19896307 (Version 1)
Quarter: 2021Q3

REPORT INFORMATION
  Report Type: Spontaneous
  Country: CN (occurrence: CN)
  Receive Date: 20210929
  Receipt Date: 20210929
  Transmission Date: 20211014
  Serious: Yes (Other)
  Sender: FDA-Public Use
  Company Number: CN-PFIZER INC-202101227503

PATIENT
  Age: 43 Year
  Sex: Female
  Weight: 43.3 kg

DRUGS (9)
  1. TROPISETRON [Concomitant]
     Active Substance: TROPISETRON
     Indication: ANTIEMETIC SUPPORTIVE CARE
     Dosage: 5 MG (HALF AN HOUR BEFORE CHEMOTHERAPY)
     Route: 041
     Dates: start: 20210907, end: 20210907
  2. OMEPRAZOLE. [Concomitant]
     Active Substance: OMEPRAZOLE
     Indication: ANTIEMETIC SUPPORTIVE CARE
     Dosage: 40 MG (HALF AN HOUR BEFORE CHEMOTHERAPY)
     Route: 041
     Dates: start: 20210907, end: 20210907
  3. PHARMORUBICIN [Suspect]
     Active Substance: EPIRUBICIN
     Indication: BREAST CANCER
     Dosage: 120 MG, 1X/DAY
     Route: 041
     Dates: start: 20210907, end: 20210907
  4. DEXAMETHASONE. [Concomitant]
     Active Substance: DEXAMETHASONE
     Indication: ANTIEMETIC SUPPORTIVE CARE
     Dosage: 5 MG (HALF AN HOUR BEFORE CHEMOTHERAPY)
     Route: 041
     Dates: start: 20210907, end: 20210907
  5. SODIUM CHLORIDE. [Concomitant]
     Active Substance: SODIUM CHLORIDE
     Dosage: 5 ML, 1X/DAY ((HALF AN HOUR BEFORE CHEMOTHERAPY)
     Route: 041
     Dates: start: 20210907, end: 20210907
  6. SODIUM CHLORIDE. [Concomitant]
     Active Substance: SODIUM CHLORIDE
     Dosage: 5 ML, 1X/DAY 100 ML, 1X/DAY (AFTER CHEMOTERAPY)
     Route: 041
     Dates: start: 20210907, end: 20210907
  7. SODIUM CHLORIDE. [Concomitant]
     Active Substance: SODIUM CHLORIDE
     Indication: VEHICLE SOLUTION USE
     Dosage: 100 ML, 1X/DAY FOR TREATMENT
     Route: 041
     Dates: start: 20210907, end: 20210907
  8. CYCLOPHOSPHAMIDE. [Suspect]
     Active Substance: CYCLOPHOSPHAMIDE
     Indication: BREAST CANCER
     Dosage: 0.8 G, 1X/DAY
     Route: 041
     Dates: start: 20210907, end: 20210907
  9. TROPISETRON [Concomitant]
     Active Substance: TROPISETRON
     Dosage: 5 MG ( AFTER CHEMOTHERAPY)
     Route: 042
     Dates: start: 20210907, end: 20210907

REACTIONS (5)
  - Headache [Recovering/Resolving]
  - Dizziness [Recovering/Resolving]
  - Vomiting [Recovering/Resolving]
  - Nausea [Recovering/Resolving]
  - Insomnia [Unknown]

NARRATIVE: CASE EVENT DATE: 20210907
